FAERS Safety Report 5824646-9 (Version None)
Quarter: 2008Q3

REPORT INFORMATION
  Report Type: 
  Country: None (occurrence: None)
  Receive Date: 20080728
  Receipt Date: 20080716
  Transmission Date: 20090109
  Serious: Yes (Hospitalization)
  Sender: FDA-Public Use
  Company Number: JP-EISAI MEDIAL RESEARCH-E3810-02023-SPO-JP

PATIENT
  Age: 52 Year
  Sex: Male
  Weight: 70 kg

DRUGS (13)
  1. RABEPRAZOLE SODIUM [Suspect]
     Indication: PROPHYLAXIS AGAINST GASTROINTESTINAL ULCER
     Route: 048
     Dates: start: 20080603, end: 20080625
  2. CANDESARTAN CILEXETIL [Concomitant]
     Route: 048
  3. NATRIX [Concomitant]
     Route: 048
  4. URALYT-U [Concomitant]
     Route: 048
  5. LUPRAC [Concomitant]
     Route: 048
  6. ALLOPURINOL [Concomitant]
     Route: 048
  7. HERBESSOR R [Concomitant]
     Route: 048
  8. PREDONINE [Concomitant]
     Route: 048
  9. COMELIAN [Concomitant]
     Route: 048
  10. WARFARIN SODIUM [Concomitant]
     Route: 048
  11. ASPIRIN [Concomitant]
     Route: 048
  12. PRAVASTATIN [Concomitant]
     Route: 048
  13. COTRIM [Concomitant]
     Route: 048

REACTIONS (3)
  - DYSGEUSIA [None]
  - HYPONATRAEMIA [None]
  - MALAISE [None]
